FAERS Safety Report 13083888 (Version 1)
Quarter: 2017Q1

REPORT INFORMATION
  Report Type: Spontaneous
  Country: CN (occurrence: CN)
  Receive Date: 20170104
  Receipt Date: 20170104
  Transmission Date: 20170428
  Serious: Yes (Death, Hospitalization, Other)
  Sender: FDA-Public Use
  Company Number: CN-APOPHARMA USA, INC.-2016AP016142

PATIENT
  Age: 65 Year
  Sex: Female

DRUGS (8)
  1. BORTEZOMIB [Concomitant]
     Active Substance: BORTEZOMIB
     Indication: CHEMOTHERAPY
     Dosage: 2.0 MG, OTHER
     Route: 065
     Dates: start: 20101105
  2. DEXAMETHASONE. [Concomitant]
     Active Substance: DEXAMETHASONE
     Indication: PLASMA CELL MYELOMA
     Dosage: 20 MG, QD
     Route: 065
  3. ALKERAN [Suspect]
     Active Substance: MELPHALAN
     Indication: PLASMA CELL MYELOMA
     Dosage: 12 MG, QD
     Route: 065
  4. PIRARUBICIN [Concomitant]
     Active Substance: PIRARUBICIN
     Indication: PLASMA CELL MYELOMA
     Dosage: 10 MG, QD
     Route: 065
  5. DEXAMETHASONE. [Concomitant]
     Active Substance: DEXAMETHASONE
     Indication: CHEMOTHERAPY
     Dosage: 20 MG, OTHER
     Route: 065
     Dates: start: 20101105
  6. THALIDOMIDE [Concomitant]
     Active Substance: THALIDOMIDE
     Indication: CHEMOTHERAPY
     Dosage: 200 MG, QD
     Route: 065
     Dates: start: 20100201, end: 20121013
  7. LENALIDOMIDE [Concomitant]
     Active Substance: LENALIDOMIDE
     Indication: CHEMOTHERAPY
     Dosage: 10 MG, QD
     Route: 065
     Dates: start: 20090911
  8. VINCRISTINE [Concomitant]
     Active Substance: VINCRISTINE
     Indication: PLASMA CELL MYELOMA
     Dosage: 0.5 MG, QD
     Route: 065

REACTIONS (3)
  - Dizziness [Unknown]
  - Respiratory failure [Fatal]
  - B precursor type acute leukaemia [Not Recovered/Not Resolved]
